FAERS Safety Report 4591056-4 (Version None)
Quarter: 2005Q1

REPORT INFORMATION
  Report Type: 
  Country: None (occurrence: None)
  Receive Date: 20050222
  Receipt Date: 20050222
  Transmission Date: 20050727
  Serious: Yes (Other)
  Sender: FDA-Public Use
  Company Number: None

PATIENT
  Age: 76 Year
  Sex: Female
  Weight: 73.9363 kg

DRUGS (1)
  1. ZOSYN [Suspect]
     Indication: SEPSIS SYNDROME
     Dosage: 3.375 GM  IV Q 6 HRS
     Route: 042

REACTIONS (1)
  - RASH ERYTHEMATOUS [None]
